FAERS Safety Report 13125889 (Version 2)
Quarter: 2017Q1

REPORT INFORMATION
  Report Type: Spontaneous
  Country: US (occurrence: US)
  Receive Date: 20170118
  Receipt Date: 20170125
  Transmission Date: 20170428
  Serious: Yes (Other)
  Sender: FDA-Public Use
  Company Number: US-LUNDBECK-DKLU2025075

PATIENT
  Sex: Male
  Weight: 27 kg

DRUGS (11)
  1. ONFI [Suspect]
     Active Substance: CLOBAZAM
     Route: 065
     Dates: start: 20161117
  2. ONFI [Suspect]
     Active Substance: CLOBAZAM
     Route: 065
     Dates: start: 20161117
  3. KEPPRA [Concomitant]
     Active Substance: LEVETIRACETAM
     Indication: PRODUCT USED FOR UNKNOWN INDICATION
     Route: 065
  4. SABRIL [Suspect]
     Active Substance: VIGABATRIN
     Indication: EPILEPSY
     Route: 065
  5. ONFI [Suspect]
     Active Substance: CLOBAZAM
     Indication: EPILEPSY
     Route: 065
  6. VITAMIN D [Concomitant]
     Active Substance: CHOLECALCIFEROL
     Indication: PRODUCT USED FOR UNKNOWN INDICATION
     Route: 065
  7. ZANTAC [Concomitant]
     Active Substance: RANITIDINE HYDROCHLORIDE
     Indication: PRODUCT USED FOR UNKNOWN INDICATION
     Route: 065
  8. SABRIL [Suspect]
     Active Substance: VIGABATRIN
     Route: 065
  9. ROBINUL [Concomitant]
     Active Substance: GLYCOPYRROLATE
     Indication: PRODUCT USED FOR UNKNOWN INDICATION
     Route: 065
  10. ATROVENT [Concomitant]
     Active Substance: IPRATROPIUM BROMIDE
     Indication: PRODUCT USED FOR UNKNOWN INDICATION
     Route: 065
  11. MIRALAX [Concomitant]
     Active Substance: POLYETHYLENE GLYCOL 3350
     Indication: PRODUCT USED FOR UNKNOWN INDICATION
     Route: 065

REACTIONS (9)
  - Weight increased [Unknown]
  - Ophthalmological examination abnormal [Unknown]
  - Tachycardia [Unknown]
  - Seizure [Unknown]
  - Hypotonia [Unknown]
  - Agitation [Unknown]
  - Hypertonia [Unknown]
  - Flushing [Unknown]
  - Dystonia [Unknown]
